FAERS Safety Report 11567660 (Version 1)
Quarter: 2015Q3

REPORT INFORMATION
  Report Type: Spontaneous
  Country: US (occurrence: US)
  Receive Date: 20150916
  Receipt Date: 20150916
  Transmission Date: 20151125
  Serious: No
  Sender: FDA-Public Use
  Company Number: US-ELI_LILLY_AND_COMPANY-US200907006730

PATIENT
  Sex: Female

DRUGS (2)
  1. PREDNISONE. [Concomitant]
     Active Substance: PREDNISONE
     Dates: start: 200907
  2. FORTEO [Suspect]
     Active Substance: TERIPARATIDE

REACTIONS (2)
  - Arthritis [Unknown]
  - Arthralgia [Unknown]
